FAERS Safety Report 17290324 (Version 1)
Quarter: 2020Q1

REPORT INFORMATION
  Report Type: Spontaneous
  Country: FR (occurrence: FR)
  Receive Date: 20200121
  Receipt Date: 20200121
  Transmission Date: 20200409
  Serious: Yes (Hospitalization)
  Sender: FDA-Public Use
  Company Number: FR-SUN PHARMACEUTICAL INDUSTRIES LTD-2020RR-233874

PATIENT
  Age: 38 Year
  Sex: Male

DRUGS (4)
  1. KETOPROFEN. [Suspect]
     Active Substance: KETOPROFEN
     Indication: LIGAMENT SPRAIN
     Dosage: 1 DOSAGE FORM, IN TOTAL
     Route: 048
     Dates: start: 20191128, end: 20191128
  2. PARACETAMOL [Suspect]
     Active Substance: ACETAMINOPHEN
     Indication: LIGAMENT SPRAIN
     Dosage: 4 GRAM, DAILY
     Route: 048
     Dates: start: 20191127, end: 20191201
  3. CONTRAMAL 50 MG, GELULE [Suspect]
     Active Substance: TRAMADOL HYDROCHLORIDE
     Indication: LIGAMENT SPRAIN
     Dosage: 50 MILLIGRAM, IN TOTAL
     Route: 048
     Dates: start: 20191129, end: 20191129
  4. LOVENOX [Suspect]
     Active Substance: ENOXAPARIN SODIUM
     Indication: LIGAMENT SPRAIN
     Dosage: 40 MILLIGRAM, DAILY
     Route: 058
     Dates: start: 20191127, end: 20191201

REACTIONS (2)
  - Hepatocellular injury [Recovering/Resolving]
  - Palatal oedema [Recovered/Resolved]

NARRATIVE: CASE EVENT DATE: 20191201
